FAERS Safety Report 5682881-7 (Version None)
Quarter: 2008Q1

REPORT INFORMATION
  Report Type: 
  Country: None (occurrence: None)
  Receive Date: 20080325
  Receipt Date: 20080316
  Transmission Date: 20080703
  Serious: Yes (Hospitalization)
  Sender: FDA-Public Use
  Company Number: CHPA2008US04845

PATIENT
  Age: 21 Year
  Sex: Female

DRUGS (1)
  1. NODOZ (NCH)(CAFFEINE) CAPLET [Suspect]
     Indication: SOMNOLENCE
     Dosage: ORAL
     Route: 048

REACTIONS (1)
  - CONVULSION [None]
